FAERS Safety Report 9523039 (Version 4)
Quarter: 2014Q2

REPORT INFORMATION
  Report Type: Spontaneous
  Country: US (occurrence: US)
  Receive Date: 20130913
  Receipt Date: 20140617
  Transmission Date: 20141212
  Serious: Yes (Other)
  Sender: FDA-Public Use
  Company Number: CHPA2013US013973

PATIENT
  Age: 85 Year
  Sex: Female

DRUGS (6)
  1. ASCRIPTIN BUFFERED REG STRENGTH TABLETS [Suspect]
     Indication: HEADACHE
     Dosage: 1 DF, UNK
     Route: 048
  2. ASCRIPTIN BUFFERED REG STRENGTH TABLETS [Suspect]
     Indication: BACK PAIN
     Dosage: UNK
  3. ASCRIPTIN BUFFERED REG STRENGTH TABLETS [Suspect]
     Indication: ANTICOAGULANT THERAPY
  4. ACETYLSALICYLIC ACID [Suspect]
     Indication: MIGRAINE
     Dosage: 1-2 UNK, UNK
     Route: 048
  5. ACETYLSALICYLIC ACID [Suspect]
     Indication: TOOTHACHE
  6. BABY ASPIRIN [Concomitant]
     Indication: PAIN
     Dosage: 1 DF, UNK
     Route: 048

REACTIONS (11)
  - Aortic valve disease [Recovered/Resolved]
  - Blindness [Not Recovered/Not Resolved]
  - Macular degeneration [Not Recovered/Not Resolved]
  - Fluid retention [Recovered/Resolved]
  - Abdominal discomfort [Recovered/Resolved]
  - Cardiac disorder [Unknown]
  - Erythema [Recovered/Resolved]
  - Vomiting [Recovered/Resolved]
  - Urticaria [Recovered/Resolved]
  - Underdose [Unknown]
  - Off label use [Unknown]
